FAERS Safety Report 24955694 (Version 1)
Quarter: 2025Q1

REPORT INFORMATION
  Report Type: Spontaneous
  Country: US (occurrence: US)
  Receive Date: 20250211
  Receipt Date: 20250211
  Transmission Date: 20250408
  Serious: No
  Sender: SANOFI AVENTIS
  Company Number: US-SA-2025SA039369

PATIENT
  Age: 8 Year
  Sex: Male
  Weight: 28.118 kg

DRUGS (6)
  1. DUPIXENT [Suspect]
     Active Substance: DUPILUMAB
     Indication: Dermatitis atopic
     Dosage: 200 MG, QOW
     Route: 058
     Dates: start: 202304
  2. DUPIXENT [Suspect]
     Active Substance: DUPILUMAB
     Dosage: 200 MG, QOW
     Route: 058
     Dates: start: 2025
  3. EPINEPHRINE [Concomitant]
     Active Substance: EPINEPHRINE
  4. MOMETASONE FUROATE [Concomitant]
     Active Substance: MOMETASONE FUROATE
  5. PETROLEUM JELLY [Concomitant]
     Active Substance: PETROLATUM
  6. VITAMINS [Concomitant]
     Active Substance: VITAMINS

REACTIONS (4)
  - Sleep disorder due to a general medical condition [Recovered/Resolved]
  - Dermatitis atopic [Recovered/Resolved]
  - Dry skin [Recovered/Resolved]
  - Incorrect dose administered [Unknown]

NARRATIVE: CASE EVENT DATE: 20230401
